FAERS Safety Report 22940095 (Version 2)
Quarter: 2023Q4

REPORT INFORMATION
  Report Type: Spontaneous
  Country: US (occurrence: US)
  Receive Date: 20230913
  Receipt Date: 20231204
  Transmission Date: 20240110
  Serious: No
  Sender: FDA-Public Use
  Company Number: US-SA-SAC20230911000853

PATIENT
  Age: 54 Year
  Sex: Female

DRUGS (1)
  1. KEVZARA [Suspect]
     Active Substance: SARILUMAB
     Indication: Rheumatoid arthritis
     Dosage: 200 MG, QOW
     Route: 058
     Dates: start: 202308, end: 2023

REACTIONS (4)
  - Impaired quality of life [Unknown]
  - Pain [Unknown]
  - Malaise [Unknown]
  - Stomatitis [Unknown]

NARRATIVE: CASE EVENT DATE: 20230101
